FAERS Safety Report 9536272 (Version 1)
Quarter: 2013Q2

REPORT INFORMATION
  Report Type: Spontaneous
  Country: US (occurrence: None)
  Receive Date: 20130507
  Receipt Date: 20130507
  Transmission Date: 20140414
  Serious: No
  Sender: FDA-Public Use
  Company Number: PHEH2013US004522

PATIENT
  Age: 6 Year
  Sex: Male

DRUGS (1)
  1. AFINITOR (RAD) [Suspect]
     Indication: TUBEROUS SCLEROSIS
     Route: 048
     Dates: start: 20130131

REACTIONS (1)
  - Convulsion [None]
